FAERS Safety Report 11157126 (Version 1)
Quarter: 2015Q2

REPORT INFORMATION
  Report Type: Spontaneous
  Country: FR (occurrence: FR)
  Receive Date: 20150602
  Receipt Date: 20150602
  Transmission Date: 20150821
  Serious: Yes (Hospitalization)
  Sender: FDA-Public Use
  Company Number: FR-GILEAD-2015-0155572

PATIENT
  Age: 57 Year
  Sex: Female

DRUGS (12)
  1. CELLCEPT [Concomitant]
     Active Substance: MYCOPHENOLATE MOFETIL\MYCOPHENOLATE MOFETIL HYDROCHLORIDE
  2. STILNOX [Concomitant]
     Active Substance: ZOLPIDEM TARTRATE
  3. TENORMIN [Concomitant]
     Active Substance: ATENOLOL
  4. DACLATASVIR [Suspect]
     Active Substance: DACLATASVIR
     Indication: HEPATITIS C
     Dosage: 60 MG, UNK
     Route: 048
     Dates: start: 20141128, end: 20141218
  5. RENITEC                            /00574902/ [Concomitant]
     Active Substance: ENALAPRIL MALEATE
  6. KALETRA [Concomitant]
     Active Substance: LOPINAVIR\RITONAVIR
  7. SUBUTEX [Concomitant]
     Active Substance: BUPRENORPHINE HYDROCHLORIDE
  8. SOVALDI [Suspect]
     Active Substance: SOFOSBUVIR
     Indication: HEPATITIS C
     Dosage: 400 MG, UNK
     Route: 048
     Dates: start: 20141128, end: 20141218
  9. TAHOR [Concomitant]
     Active Substance: ATORVASTATIN CALCIUM
  10. LASILIX                            /00032601/ [Concomitant]
     Active Substance: FUROSEMIDE
  11. PROGRAF [Concomitant]
     Active Substance: TACROLIMUS\TACROLIMUS ANHYDROUS
  12. EUPRESSYL                          /00631801/ [Concomitant]
     Active Substance: URAPIDIL

REACTIONS (1)
  - Rash [Recovering/Resolving]

NARRATIVE: CASE EVENT DATE: 20141207
